FAERS Safety Report 4691556-2 (Version None)
Quarter: 2005Q2

REPORT INFORMATION
  Report Type: 
  Country: None (occurrence: None)
  Receive Date: 20050608
  Receipt Date: 20041101
  Transmission Date: 20051028
  Serious: Yes (Other)
  Sender: FDA-Public Use
  Company Number: 351460

PATIENT
  Sex: Male
  Weight: 14 kg

DRUGS (3)
  1. ACCUTANE [Suspect]
     Indication: DRUG USE FOR UNKNOWN INDICATION
     Dosage: ORAL
     Route: 048
     Dates: start: 20021009, end: 20030314
  2. ORAL CONTRACEPTIVE PILL (ORAL CONTRACEPTIVE NOS) [Concomitant]
  3. INHALER NOS (INHALANT NOS) [Concomitant]

REACTIONS (2)
  - NORMAL NEWBORN [None]
  - UMBILICAL CORD AROUND NECK [None]
